FAERS Safety Report 23604059 (Version 3)
Quarter: 2025Q2

REPORT INFORMATION
  Report Type: Spontaneous
  Country: FR (occurrence: FR)
  Receive Date: 20240307
  Receipt Date: 20250616
  Transmission Date: 20250716
  Serious: Yes (Other)
  Sender: AUROBINDO
  Company Number: FR-AFSSAPS-TS20221013

PATIENT
  Age: 82 Year
  Sex: Female

DRUGS (5)
  1. ENALAPRIL [Suspect]
     Active Substance: ENALAPRIL
     Indication: Hypertension
     Dosage: 20 MILLIGRAM, ONCE A DAY
     Route: 048
     Dates: start: 20210818, end: 20220305
  2. LANSOPRAZOLE [Suspect]
     Active Substance: LANSOPRAZOLE
     Indication: Dysphagia
     Dosage: 15 MILLIGRAM, ONCE A DAY
     Route: 048
     Dates: start: 202201, end: 20220305
  3. METFORMIN [Suspect]
     Active Substance: METFORMIN HYDROCHLORIDE
     Indication: Diabetes mellitus
     Dosage: 500 MILLIGRAM, ONCE A DAY
     Route: 048
     Dates: start: 20210909, end: 20220305
  4. ELIQUIS [Suspect]
     Active Substance: APIXABAN
     Indication: Atrial fibrillation
     Dosage: 10 MILLIGRAM, ONCE A DAY
     Route: 048
     Dates: start: 20210919, end: 20220305
  5. DIGOXIN [Suspect]
     Active Substance: DIGOXIN
     Indication: Atrial fibrillation
     Dosage: 0.13 MILLIGRAM, ONCE A DAY
     Route: 048
     Dates: start: 20210909, end: 20220305

REACTIONS (2)
  - Cutaneous vasculitis [Not Recovered/Not Resolved]
  - Erythema [Recovering/Resolving]

NARRATIVE: CASE EVENT DATE: 20220201
